FAERS Safety Report 12104085 (Version 1)
Quarter: 2016Q1

REPORT INFORMATION
  Report Type: Spontaneous
  Country: PT (occurrence: PT)
  Receive Date: 20160223
  Receipt Date: 20160223
  Transmission Date: 20160526
  Serious: Yes (Other)
  Sender: FDA-Public Use
  Company Number: PT-ACCORD-038046

PATIENT
  Age: 54 Year
  Sex: Female

DRUGS (1)
  1. MITOMYCIN. [Suspect]
     Active Substance: MITOMYCIN
     Indication: PRODUCT USED FOR UNKNOWN INDICATION
     Dosage: MITOMYCIN C TRABECULECTOMY (0.3 MG/ML, 3 MINUTES)

REACTIONS (1)
  - Retinopathy [Recovered/Resolved]
